FAERS Safety Report 17150241 (Version 1)
Quarter: 2019Q4

REPORT INFORMATION
  Report Type: Spontaneous
  Country: US (occurrence: US)
  Receive Date: 20191213
  Receipt Date: 20191213
  Transmission Date: 20200122
  Serious: No
  Sender: FDA-Public Use
  Company Number: US-GLENMARK PHARMACEUTICALS-2019GMK043530

PATIENT

DRUGS (2)
  1. MARLISSA [Suspect]
     Active Substance: ETHINYL ESTRADIOL\LEVONORGESTREL
     Dosage: UNK;BIRTH CONTROLS FOR 3 DAYS, 2 BIRTH CONTROLS FOR 2 DAYS AND 1 BIRTH CONTROL FOR 1 DAY
     Route: 048
     Dates: start: 2019
  2. MARLISSA [Suspect]
     Active Substance: ETHINYL ESTRADIOL\LEVONORGESTREL
     Indication: ORAL CONTRACEPTION
     Dosage: 1 DF, OD
     Route: 048
     Dates: start: 2016, end: 2019

REACTIONS (3)
  - Inappropriate schedule of product administration [Unknown]
  - Metrorrhagia [Recovered/Resolved]
  - Product packaging issue [Unknown]

NARRATIVE: CASE EVENT DATE: 20190926
